FAERS Safety Report 8118676-4 (Version None)
Quarter: 2012Q1

REPORT INFORMATION
  Report Type: 
  Country: None (occurrence: None)
  Receive Date: 20120202
  Receipt Date: 20120119
  Transmission Date: 20120608
  Serious: Yes (Hospitalization, Other)
  Sender: FDA-Public Use
  Company Number: AUR-APL-2012-00726

PATIENT
  Age: 79 Year
  Sex: Male

DRUGS (2)
  1. RAMIPRIL [Suspect]
     Indication: HYPERTENSION
     Dosage: (10 MG, 1 D), ORAL
     Route: 048
  2. ALTACE [Suspect]
     Indication: HYPERTENSION
     Dosage: (10 MG, 1 D), ORAL
     Route: 048

REACTIONS (4)
  - RENAL IMPAIRMENT [None]
  - INCORRECT DOSE ADMINISTERED [None]
  - ORTHOSTATIC HYPOTENSION [None]
  - SYNCOPE [None]
